FAERS Safety Report 7463570-5 (Version None)
Quarter: 2011Q2

REPORT INFORMATION
  Report Type: 
  Country: None (occurrence: None)
  Receive Date: 20110506
  Receipt Date: 20110502
  Transmission Date: 20111010
  Serious: Yes (Death)
  Sender: FDA-Public Use
  Company Number: DE-SANOFI-AVENTIS-2011SA027101

PATIENT
  Age: 58 Year
  Sex: Female

DRUGS (3)
  1. PLACEBO [Suspect]
     Route: 041
  2. DOCETAXEL [Suspect]
     Route: 041
  3. NEXAVAR [Suspect]
     Route: 041

REACTIONS (1)
  - CARDIAC FAILURE CONGESTIVE [None]
